FAERS Safety Report 7956728-X (Version None)
Quarter: 2011Q4

REPORT INFORMATION
  Report Type: 
  Country: None (occurrence: None)
  Receive Date: 20111205
  Receipt Date: 20111129
  Transmission Date: 20120403
  Serious: Yes (Life-Threatening, Disabling, Other)
  Sender: FDA-Public Use
  Company Number: US-PFIZER INC-HQWYE459130JUL03

PATIENT
  Sex: Female
  Weight: 67 kg

DRUGS (6)
  1. PREMPRO [Suspect]
     Dosage: 0.625/2.5MG
     Route: 048
     Dates: start: 20011101, end: 20020201
  2. PREMPRO [Suspect]
     Indication: HORMONE REPLACEMENT THERAPY
     Dosage: 0.625/2.5MG
     Route: 048
     Dates: start: 20000901, end: 20010501
  3. PROVERA [Suspect]
     Indication: HORMONE REPLACEMENT THERAPY
     Dosage: UNK
     Route: 048
     Dates: start: 19890301, end: 20000901
  4. PREMARIN [Suspect]
     Dosage: UNK
     Dates: start: 20011101, end: 20020201
  5. PREMARIN [Suspect]
     Indication: HORMONE REPLACEMENT THERAPY
     Dosage: UNK
     Route: 048
     Dates: start: 19890301, end: 20000901
  6. PREMPRO [Suspect]
     Dosage: UNK
     Route: 048
     Dates: start: 20020201, end: 20020301

REACTIONS (1)
  - BREAST CANCER METASTATIC [None]
